FAERS Safety Report 12626548 (Version 1)
Quarter: 2016Q3

REPORT INFORMATION
  Report Type: Spontaneous
  Country: US (occurrence: US)
  Receive Date: 20160805
  Receipt Date: 20160805
  Transmission Date: 20161109
  Serious: No
  Sender: FDA-Public Use
  Company Number: US-ASTRAZENECA-2016SE79562

PATIENT
  Age: 956 Month
  Sex: Female
  Weight: 68.5 kg

DRUGS (5)
  1. ATENOLOL. [Suspect]
     Active Substance: ATENOLOL
     Indication: ARRHYTHMIA
     Route: 048
     Dates: start: 2004
  2. BRILINTA [Suspect]
     Active Substance: TICAGRELOR
     Indication: STENT PLACEMENT
     Route: 048
     Dates: start: 20160620
  3. ASPIRIN. [Concomitant]
     Active Substance: ASPIRIN
     Indication: ANTICOAGULANT THERAPY
     Route: 048
     Dates: start: 2004
  4. STATINS [Suspect]
     Active Substance: UNSPECIFIED INGREDIENT
     Route: 065
  5. ASPIRIN. [Concomitant]
     Active Substance: ASPIRIN
     Indication: PULMONARY FIBROSIS
     Route: 048
     Dates: start: 2004

REACTIONS (5)
  - Groin pain [Unknown]
  - Arthralgia [Unknown]
  - Muscle tightness [Unknown]
  - Neuropathy peripheral [Unknown]
  - Arrhythmia [Unknown]

NARRATIVE: CASE EVENT DATE: 201607
